FAERS Safety Report 5341534-5 (Version None)
Quarter: 2007Q2

REPORT INFORMATION
  Report Type: 
  Country: None (occurrence: None)
  Receive Date: 20070530
  Receipt Date: 20070530
  Transmission Date: 20071010
  Serious: No
  Sender: FDA-Public Use
  Company Number: None

PATIENT
  Age: 81 Year
  Sex: Male
  Weight: 109 kg

DRUGS (15)
  1. BRIMONIDINE TARTRATE [Suspect]
     Indication: GLAUCOMA
     Dosage: ONE DROP TWICE DAILY OPHTHALMIC
     Route: 047
     Dates: start: 20061201, end: 20070130
  2. ASPIRIN [Concomitant]
  3. ATORVASTATIN CALCIUM [Concomitant]
  4. BRIMONIDINE TARTRATE [Concomitant]
  5. CLOTRIMAZOLE [Concomitant]
  6. EPOETIN [Concomitant]
  7. EZETIMIBE [Concomitant]
  8. FERROUS SULFATE [Concomitant]
  9. FUROSEMIDE [Concomitant]
  10. HYDROCORTISONE [Concomitant]
  11. HUMULIN N [Concomitant]
  12. METOLAZONE [Concomitant]
  13. METOPROLOL SUCCINATE [Concomitant]
  14. PREDNISOLONE ACETATE [Concomitant]
  15. VALSARTAN [Concomitant]

REACTIONS (9)
  - DRUG INEFFECTIVE [None]
  - EYE SWELLING [None]
  - FACIAL PAIN [None]
  - HEADACHE [None]
  - NASAL CONGESTION [None]
  - ORBITAL OEDEMA [None]
  - PYREXIA [None]
  - RHINORRHOEA [None]
  - SWELLING FACE [None]
